FAERS Safety Report 25518953 (Version 2)
Quarter: 2025Q3

REPORT INFORMATION
  Report Type: Spontaneous
  Country: US (occurrence: US)
  Receive Date: 20250704
  Receipt Date: 20250731
  Transmission Date: 20251021
  Serious: No
  Sender: MERCK SHARP & DOHME LLC
  Company Number: US-009507513-2295930

PATIENT
  Sex: Female
  Weight: 90.718 kg

DRUGS (34)
  1. WINREVAIR [Suspect]
     Active Substance: SOTATERCEPT-CSRK
     Indication: Product used for unknown indication
  2. WINREVAIR [Suspect]
     Active Substance: SOTATERCEPT-CSRK
  3. WINREVAIR [Suspect]
     Active Substance: SOTATERCEPT-CSRK
  4. WINREVAIR [Suspect]
     Active Substance: SOTATERCEPT-CSRK
  5. ORENITRAM [Suspect]
     Active Substance: TREPROSTINIL
     Indication: Pulmonary arterial hypertension
     Dosage: EXTENDED RELEASE TABLET, UNK MG, 4 MG, Q8H, ORAL USE
     Route: 048
  6. ORENITRAM [Suspect]
     Active Substance: TREPROSTINIL
     Indication: Pulmonary arterial hypertension
     Dosage: EXTENDED RELEASE TABLET, UNK MG, UNK, ORAL USE
     Route: 048
     Dates: start: 20220323
  7. ORENITRAM [Suspect]
     Active Substance: TREPROSTINIL
     Indication: Pulmonary arterial hypertension
     Route: 048
  8. Culturelle (Lactobacillus nos) [Concomitant]
  9. Blisovi 24 Fe (Ethinylestradiol, Ferrous fumarate, Norethisterone a... [Concomitant]
  10. Vitamin b-12 (Cyanocobalamin) [Concomitant]
  11. FOLIC ACID [Concomitant]
     Active Substance: FOLIC ACID
  12. Epinephrine (Epinephrine hydrochloride) [Concomitant]
  13. VITAMIN D3 [Concomitant]
     Active Substance: CHOLECALCIFEROL
  14. ADVIL [Concomitant]
     Active Substance: IBUPROFEN
  15. Tiger balm (Camphor, Melaleuca leucadendra oil, Mentha spp. oil, Me... [Concomitant]
  16. MEDROL [Concomitant]
     Active Substance: METHYLPREDNISOLONE
  17. Allegra allergy (Fexofenadine hydrochloride) [Concomitant]
  18. Daily vite (Ascorbic acid, Calcium pantothenate, Colecalciferol, Cy... [Concomitant]
  19. Pfizer BioNTech COVID-19 vaccine (Tozinameran) [Concomitant]
  20. DOXYCYCLINE HYCLATE [Concomitant]
     Active Substance: DOXYCYCLINE HYCLATE
  21. Ayr (Guaifenesin, Theophylline) [Concomitant]
  22. FISH OIL [Concomitant]
     Active Substance: FISH OIL
  23. LEVOTHYROXINE SODIUM [Concomitant]
     Active Substance: LEVOTHYROXINE SODIUM
  24. Ayr saline (Sodium chloride) Gel [Concomitant]
  25. Levalbuterol tartrate hfa (Levosalbutamol tartrate) [Concomitant]
  26. ADCIRCA [Concomitant]
     Active Substance: TADALAFIL
  27. SYMBICORT [Concomitant]
     Active Substance: BUDESONIDE\FORMOTEROL FUMARATE DIHYDRATE
  28. Flaxseed oil (Linum usitatissimum seed oil) [Concomitant]
  29. Peppermint oil (Mentha x piperita essential oil) [Concomitant]
  30. BENADRYL [Concomitant]
     Active Substance: DIPHENHYDRAMINE HYDROCHLORIDE
  31. Xopenex hfa (Levosalbutamol tartrate) [Concomitant]
  32. Levalbuterol (Levosalbutamol hydrochloride) [Concomitant]
  33. ONDANSETRON HYDROCHLORIDE [Concomitant]
     Active Substance: ONDANSETRON HYDROCHLORIDE
  34. XYZAL [Concomitant]
     Active Substance: LEVOCETIRIZINE DIHYDROCHLORIDE

REACTIONS (2)
  - Injection site scar [Unknown]
  - Injection site pain [Recovered/Resolved]
